FAERS Safety Report 19240994 (Version 3)
Quarter: 2021Q3

REPORT INFORMATION
  Report Type: Spontaneous
  Country: US (occurrence: US)
  Receive Date: 20210511
  Receipt Date: 20210716
  Transmission Date: 20211014
  Serious: Yes (Hospitalization)
  Sender: FDA-Public Use
  Company Number: US-NOVOPROD-809758

PATIENT
  Age: 79 Year
  Sex: Male

DRUGS (1)
  1. FIASP [Suspect]
     Active Substance: INSULIN ASPART
     Indication: PRODUCT USED FOR UNKNOWN INDICATION
     Dosage: UNK
     Route: 058
     Dates: start: 202103

REACTIONS (5)
  - Condition aggravated [Not Recovered/Not Resolved]
  - Diabetes mellitus inadequate control [Unknown]
  - Staphylococcal osteomyelitis [Not Recovered/Not Resolved]
  - Blood glucose increased [Recovered/Resolved]
  - Product quality issue [Unknown]

NARRATIVE: CASE EVENT DATE: 20210413
